FAERS Safety Report 24440764 (Version 1)
Quarter: 2024Q4

REPORT INFORMATION
  Report Type: Spontaneous
  Country: CZ (occurrence: CZ)
  Receive Date: 20241016
  Receipt Date: 20241016
  Transmission Date: 20250114
  Serious: Yes (Hospitalization)
  Sender: BIOGEN
  Company Number: CZ-BIOGEN-2024BI01286133

PATIENT
  Age: 47 Year
  Sex: Female

DRUGS (3)
  1. TYSABRI [Suspect]
     Active Substance: NATALIZUMAB
     Indication: Multiple sclerosis
     Dosage: LOT NUMBER USED PRIOR TO THE START OF THE EVENT: EC  2115, APPLIED 20-AUG-2024
     Route: 050
     Dates: start: 20221212
  2. TYSABRI [Suspect]
     Active Substance: NATALIZUMAB
     Indication: Multiple sclerosis
     Route: 050
     Dates: start: 20201210, end: 20221017
  3. COMBAIR [Concomitant]
     Indication: Product used for unknown indication
     Dosage: 100 MCG/ 6 MCG / DOSE PRESSURISED INHALATION SOLUTION (PSS) 2-0-0; 2 INHALATIONS 2X A DAY
     Route: 050

REACTIONS (2)
  - Complicated appendicitis [Recovered/Resolved]
  - Spinal pain [Unknown]

NARRATIVE: CASE EVENT DATE: 20240915
